FAERS Safety Report 19499696 (Version 3)
Quarter: 2021Q4

REPORT INFORMATION
  Report Type: Report from Study
  Country: CA (occurrence: CA)
  Receive Date: 20210706
  Receipt Date: 20211208
  Transmission Date: 20220304
  Serious: Yes (Hospitalization, Other)
  Sender: FDA-Public Use
  Company Number: CA-BAUSCH-BL-2021-022747

PATIENT
  Age: 71 Year
  Sex: Female

DRUGS (3)
  1. METRONIDAZOLE [Suspect]
     Active Substance: METRONIDAZOLE
     Indication: Vaginal infection
     Route: 065
  2. HUMIRA [Suspect]
     Active Substance: ADALIMUMAB
     Indication: Colitis ulcerative
     Route: 058
  3. FLAGYL [Suspect]
     Active Substance: METRONIDAZOLE\METRONIDAZOLE HYDROCHLORIDE
     Indication: Vaginal infection
     Route: 065

REACTIONS (6)
  - Colitis ulcerative [Recovering/Resolving]
  - Abdominal pain [Unknown]
  - Haematochezia [Unknown]
  - Mucous stools [Unknown]
  - Vaginal infection [Unknown]
  - Therapeutic product effect delayed [Unknown]
